FAERS Safety Report 8016202-1 (Version None)
Quarter: 2011Q4

REPORT INFORMATION
  Report Type: 
  Country: None (occurrence: None)
  Receive Date: 20111228
  Receipt Date: 20111228
  Transmission Date: 20120403
  Serious: Yes (Other)
  Sender: FDA-Public Use
  Company Number: None

PATIENT
  Age: 39 Year
  Sex: Female
  Weight: 59.8748 kg

DRUGS (1)
  1. KETOROLAC TROMETHAMINE [Suspect]
     Indication: PREOPERATIVE CARE
     Dosage: KETOROLAC 0.5 % OPTH. SUN PHARMACEUTICAL
     Route: 047
     Dates: start: 20101203, end: 20101206

REACTIONS (1)
  - KERATITIS HERPETIC [None]
